FAERS Safety Report 16628831 (Version 1)
Quarter: 2019Q3

REPORT INFORMATION
  Report Type: Spontaneous
  Country: US (occurrence: US)
  Receive Date: 20190612
  Receipt Date: 20190612
  Transmission Date: 20191004
  Serious: Yes (Life-Threatening)
  Sender: FDA-Public Use
  Company Number: None

PATIENT
  Age: 74 Year
  Sex: Male
  Weight: 126 kg

DRUGS (1)
  1. ADALIMUMAB [Suspect]
     Active Substance: ADALIMUMAB
     Indication: SPONDYLOARTHROPATHY
     Route: 058
     Dates: start: 20121018, end: 20190601

REACTIONS (4)
  - Refusal of treatment by patient [None]
  - Thrombocytopenia [None]
  - Anaemia [None]
  - Acute myeloid leukaemia [None]

NARRATIVE: CASE EVENT DATE: 20190601
